FAERS Safety Report 9216300 (Version 1)
Quarter: 2013Q2

REPORT INFORMATION
  Report Type: Spontaneous
  Country: US (occurrence: None)
  Receive Date: 20130402
  Receipt Date: 20130402
  Transmission Date: 20140414
  Serious: Yes (Hospitalization, Other)
  Sender: FDA-Public Use
  Company Number: ACO_35089_2013

PATIENT
  Age: 60 Year
  Sex: Female
  Weight: 71.7 kg

DRUGS (10)
  1. AMPYRA [Suspect]
     Indication: MULTIPLE SCLEROSIS
     Route: 048
  2. EFFEXOR [Suspect]
     Indication: PRODUCT USED FOR UNKNOWN INDICATION
  3. MIRAPEX [Suspect]
     Indication: PRODUCT USED FOR UNKNOWN INDICATION
  4. QUETIAPINE [Concomitant]
  5. TOLTERODINE [Concomitant]
  6. DETROL [Concomitant]
  7. HYDROCHLOROTHIAZIDE [Concomitant]
  8. LORAZEPAM [Concomitant]
  9. BACLOFEN [Concomitant]
  10. TRICOR [Concomitant]

REACTIONS (7)
  - Emotional disorder [None]
  - Bronchitis [None]
  - Malaise [None]
  - Muscular weakness [None]
  - Fall [None]
  - Confusional state [None]
  - Asthenia [None]
